FAERS Safety Report 10904179 (Version 1)
Quarter: 2015Q1

REPORT INFORMATION
  Report Type: Spontaneous
  Country: US (occurrence: None)
  Receive Date: 20150107
  Receipt Date: 20150107
  Transmission Date: 20150721
  Serious: No
  Sender: FDA-Public Use
  Company Number: 2014TUS011821

PATIENT
  Age: 31 Year
  Sex: Female
  Weight: 84.8 kg

DRUGS (1)
  1. CONTRAVE [Suspect]
     Active Substance: BUPROPION HYDROCHLORIDE\NALTREXONE HYDROCHLORIDE
     Indication: WEIGHT CONTROL
     Dosage: 8MG/90MG ONE TABLET, ORAL
     Route: 048
     Dates: start: 20141108, end: 20141114

REACTIONS (7)
  - Middle insomnia [None]
  - Feeling jittery [None]
  - Headache [None]
  - Dry mouth [None]
  - Hunger [None]
  - Drug ineffective [None]
  - Nausea [None]

NARRATIVE: CASE EVENT DATE: 20141108
